FAERS Safety Report 20502619 (Version 1)
Quarter: 2022Q1

REPORT INFORMATION
  Report Type: Other
  Country: US (occurrence: US)
  Receive Date: 20220222
  Receipt Date: 20220222
  Transmission Date: 20220424
  Serious: Yes (Hospitalization, Other)
  Sender: FDA-Public Use
  Company Number: US-BIOVITRUM-2022US02420

PATIENT
  Sex: Female

DRUGS (1)
  1. KINERET [Suspect]
     Active Substance: ANAKINRA
     Indication: Rheumatoid arthritis
     Route: 058
     Dates: start: 20201222

REACTIONS (4)
  - Rheumatoid arthritis [Unknown]
  - Post procedural infection [Unknown]
  - C-reactive protein increased [Unknown]
  - Red blood cell sedimentation rate [Unknown]
